FAERS Safety Report 9238366 (Version 1)
Quarter: 2013Q2

REPORT INFORMATION
  Report Type: Spontaneous
  Country: GB (occurrence: GB)
  Receive Date: 20130418
  Receipt Date: 20130418
  Transmission Date: 20140414
  Serious: Yes (Death, Other)
  Sender: FDA-Public Use
  Company Number: GB-JNJFOC-20130407798

PATIENT
  Age: 57 Year
  Sex: Female

DRUGS (7)
  1. TRAMADOL HYDROCHLORIDE [Suspect]
     Indication: SKIN ULCER
     Dosage: ONCE A DAY
     Route: 048
  2. TRAMADOL HYDROCHLORIDE [Suspect]
     Indication: SKIN ULCER
     Route: 048
  3. TRAMADOL HYDROCHLORIDE [Suspect]
     Indication: BACK PAIN
     Route: 048
  4. TRAMADOL HYDROCHLORIDE [Suspect]
     Indication: BACK PAIN
     Dosage: ONCE A DAY
     Route: 048
  5. ANTIHYPERTENSIVES [Concomitant]
     Indication: HYPERTENSION
     Route: 065
  6. ALL OTHER THERAPEUTIC PRODUCTS [Concomitant]
     Indication: SKIN ULCER
     Route: 065
  7. DRUG USED IN DIABETES [Concomitant]
     Indication: DIABETES MELLITUS
     Route: 065

REACTIONS (2)
  - Respiratory arrest [Fatal]
  - Accidental overdose [Not Recovered/Not Resolved]
